FAERS Safety Report 5850604-4 (Version None)
Quarter: 2008Q3

REPORT INFORMATION
  Report Type: 
  Country: None (occurrence: None)
  Receive Date: 20080820
  Receipt Date: 20080811
  Transmission Date: 20090109
  Serious: Yes (Other)
  Sender: FDA-Public Use
  Company Number: US-JNJFOC-20080802887

PATIENT
  Age: 79 Year
  Sex: Female
  Weight: 56.7 kg

DRUGS (3)
  1. TOPAMAX [Suspect]
     Route: 048
  2. TOPAMAX [Suspect]
     Route: 048
  3. TOPAMAX [Suspect]
     Indication: ARTHRITIS
     Route: 048

REACTIONS (6)
  - CRYING [None]
  - DEPRESSION [None]
  - FATIGUE [None]
  - MEMORY IMPAIRMENT [None]
  - OEDEMA PERIPHERAL [None]
  - SUICIDAL IDEATION [None]
